FAERS Safety Report 9115233 (Version 1)
Quarter: 2013Q1

REPORT INFORMATION
  Report Type: Spontaneous
  Country: ES (occurrence: None)
  Receive Date: 20130129
  Receipt Date: 20130129
  Transmission Date: 20140127
  Serious: No
  Sender: FDA-Public Use
  Company Number: 2013P1000885

PATIENT
  Age: 66 Year
  Sex: Male

DRUGS (8)
  1. FENTANYL [Suspect]
     Indication: ABDOMINAL PAIN
     Dosage: 12 MCG;Q72H;TDER
  2. IMATINIB [Suspect]
     Indication: GASTROINTESTINAL STROMAL TUMOUR
     Dosage: 400 MG;Q24H
  3. ORAL SALINE SOLUTION [Concomitant]
  4. AMPULES [Concomitant]
  5. TAMSULOSIN [Concomitant]
  6. OMEPRAZOLE [Concomitant]
  7. MAGNESIUM [Concomitant]
  8. KETOLATE [Concomitant]

REACTIONS (10)
  - Depressed level of consciousness [None]
  - Urinary tract infection [None]
  - Vomiting [None]
  - Constipation [None]
  - Drug ineffective [None]
  - Hepatic encephalopathy [None]
  - Treatment noncompliance [None]
  - Hepatic failure [None]
  - Hepatotoxicity [None]
  - Nervous system disorder [None]
